FAERS Safety Report 5981471-6 (Version None)
Quarter: 2008Q4

REPORT INFORMATION
  Report Type: 
  Country: None (occurrence: None)
  Receive Date: 20081126
  Receipt Date: 20080130
  Transmission Date: 20090506
  Serious: Yes (Hospitalization)
  Sender: FDA-Public Use
  Company Number: 2007BH009537

PATIENT
  Age: 58 Year
  Sex: Male
  Weight: 102 kg

DRUGS (16)
  1. DIANEAL [Suspect]
     Indication: PERITONEAL DIALYSIS
     Dosage: IP
     Route: 033
  2. EXTRANEAL [Suspect]
     Indication: PERITONEAL DIALYSIS
     Dosage: IP
     Route: 033
  3. DULCOLAX [Concomitant]
  4. METAMUCIL [Concomitant]
  5. FERROUS SULFATE TAB [Concomitant]
  6. LASIX [Concomitant]
  7. COLACE [Concomitant]
  8. NOVOLOG [Concomitant]
  9. LANTUS [Concomitant]
  10. EPOGEN [Concomitant]
  11. TOBRAMYCIN [Concomitant]
  12. LIPITOR [Concomitant]
  13. GENTAMICIN [Concomitant]
  14. VITAMIN B [Concomitant]
  15. ASCORBIC ACID [Concomitant]
  16. FOLIC ACID [Concomitant]

REACTIONS (3)
  - PERITONITIS BACTERIAL [None]
  - PYREXIA [None]
  - VOMITING [None]
